FAERS Safety Report 5214252-1 (Version None)
Quarter: 2007Q1

REPORT INFORMATION
  Report Type: 
  Country: None (occurrence: None)
  Receive Date: 20070122
  Receipt Date: 20070115
  Transmission Date: 20070707
  Serious: Yes (Other)
  Sender: FDA-Public Use
  Company Number: 2007SE00236

PATIENT
  Age: 64 Year
  Sex: Male
  Weight: 92 kg

DRUGS (3)
  1. AMIAS 8MG TABLETS [Suspect]
     Indication: ESSENTIAL HYPERTENSION
     Route: 048
     Dates: start: 20060731, end: 20060803
  2. ATENOLOL [Concomitant]
     Route: 065
     Dates: start: 20020207
  3. NICORANDIL [Concomitant]
     Route: 065
     Dates: start: 20020228

REACTIONS (1)
  - GOUT [None]
